FAERS Safety Report 19378848 (Version 1)
Quarter: 2021Q2

REPORT INFORMATION
  Report Type: Report from Study
  Country: None (occurrence: US)
  Receive Date: 20210606
  Receipt Date: 20210606
  Transmission Date: 20210717
  Serious: Yes (Other)
  Sender: FDA-Public Use
  Company Number: US-ABBVIE-21K-163-3807359-00

PATIENT
  Sex: Male

DRUGS (2)
  1. IMBRUVICA [Suspect]
     Active Substance: IBRUTINIB
     Indication: CHRONIC LYMPHOCYTIC LEUKAEMIA
     Route: 048
     Dates: start: 20210305
  2. IMBRUVICA [Suspect]
     Active Substance: IBRUTINIB
     Indication: CHRONIC LYMPHOCYTIC LEUKAEMIA
     Route: 048
     Dates: start: 20210306

REACTIONS (10)
  - Pulmonary oedema [Not Recovered/Not Resolved]
  - White blood cell count increased [Unknown]
  - Diarrhoea [Recovering/Resolving]
  - Productive cough [Not Recovered/Not Resolved]
  - Weight decreased [Recovering/Resolving]
  - Dysphonia [Unknown]
  - Cough [Unknown]
  - Lethargy [Unknown]
  - Liver function test abnormal [Unknown]
  - Dizziness [Unknown]

NARRATIVE: CASE EVENT DATE: 2021
